FAERS Safety Report 17280510 (Version 2)
Quarter: 2022Q1

REPORT INFORMATION
  Report Type: Spontaneous
  Country: US (occurrence: US)
  Receive Date: 20200117
  Receipt Date: 20220223
  Transmission Date: 20220424
  Serious: No
  Sender: FDA-Public Use
  Company Number: US-UCBSA-2019021482

PATIENT

DRUGS (1)
  1. KEPPRA [Suspect]
     Active Substance: LEVETIRACETAM
     Indication: Affective disorder
     Dosage: 7500 MG DAILY

REACTIONS (2)
  - Off label use [Unknown]
  - Overdose [Unknown]
